FAERS Safety Report 14808716 (Version 1)
Quarter: 2018Q2

REPORT INFORMATION
  Report Type: Spontaneous
  Country: ES (occurrence: ES)
  Receive Date: 20180425
  Receipt Date: 20180425
  Transmission Date: 20180711
  Serious: Yes (Other)
  Sender: FDA-Public Use
  Company Number: ES-TEVA-2018-ES-885186

PATIENT
  Age: 73 Year
  Sex: Male
  Weight: 80 kg

DRUGS (1)
  1. ATORVASTATINA CALCICA (7400CO) [Suspect]
     Active Substance: ATORVASTATIN CALCIUM
     Indication: ANTI-ERYTHROCYTE ANTIBODY POSITIVE
     Route: 048
     Dates: start: 20171217, end: 20171221

REACTIONS (1)
  - Mixed liver injury [Recovered/Resolved]

NARRATIVE: CASE EVENT DATE: 20171221
